FAERS Safety Report 5740890-3 (Version None)
Quarter: 2008Q2

REPORT INFORMATION
  Report Type: 
  Country: None (occurrence: None)
  Receive Date: 20080516
  Receipt Date: 20080508
  Transmission Date: 20081010
  Serious: Yes (Other)
  Sender: FDA-Public Use
  Company Number: CA-BOEHRINGER INGELHEIM GMBH, GERMANY-2008-DE-02638DE

PATIENT
  Age: 82 Year
  Sex: Female

DRUGS (12)
  1. AGGRENOX [Suspect]
     Dates: start: 20060801, end: 20061101
  2. ASPIRIN AND DIPYRIDAMOLE [Suspect]
     Route: 048
     Dates: start: 20060801, end: 20061001
  3. TAMOXIFEN CITRATE [Suspect]
     Indication: BREAST CANCER
     Route: 048
     Dates: start: 20050301, end: 20060901
  4. RAMIPRIL [Concomitant]
     Indication: HYPERTENSION
  5. METOPROLOL TARTRATE [Concomitant]
     Indication: HYPERTENSION
  6. TRIMAG [Concomitant]
     Indication: HYPERTENSION
  7. ASCORBIC ACID [Concomitant]
  8. VITAMIN D [Concomitant]
  9. TOCOPHERYL ACETATE [Concomitant]
  10. CALCIUM CARBONATE [Concomitant]
  11. ALENDRONATE SODIUM [Concomitant]
     Indication: OSTEOPOROSIS
  12. ATORVASTATIN CALCIUM [Concomitant]
     Indication: BLOOD CHOLESTEROL

REACTIONS (9)
  - ANOREXIA [None]
  - BLOOD PRESSURE DECREASED [None]
  - DIARRHOEA [None]
  - DIZZINESS [None]
  - DYSGEUSIA [None]
  - NAUSEA [None]
  - RESORPTION BONE INCREASED [None]
  - TRANSIENT ISCHAEMIC ATTACK [None]
  - WEIGHT DECREASED [None]
